FAERS Safety Report 8928711 (Version 3)
Quarter: 2013Q2

REPORT INFORMATION
  Report Type: Report from Study
  Country: CA (occurrence: CA)
  Receive Date: 20121127
  Receipt Date: 20130506
  Transmission Date: 20140414
  Serious: Yes (Other)
  Sender: FDA-Public Use
  Company Number: CA-UCBSA-023601

PATIENT
  Age: 42 Year
  Sex: Male
  Weight: 63.5 kg

DRUGS (7)
  1. CIMZIA [Suspect]
     Indication: SPONDYLITIS
     Route: 058
     Dates: start: 20100325, end: 20130424
  2. PREDNISONE [Concomitant]
     Indication: SPONDYLITIS
     Route: 048
     Dates: start: 1997
  3. SULFASALAZINE [Concomitant]
     Indication: SPONDYLITIS
     Route: 048
     Dates: start: 1990
  4. SULFASALAZINE [Concomitant]
     Indication: CROHN^S DISEASE
     Route: 048
     Dates: start: 1990
  5. CARBOCAL [Concomitant]
     Indication: OSTEOPOROSIS
  6. FOSAMAX [Concomitant]
     Indication: OSTEOPOROSIS
  7. MORPHINE [Concomitant]
     Indication: ARTHRALGIA
     Route: 048
     Dates: start: 20100913

REACTIONS (3)
  - Bladder cancer stage 0, with cancer in situ [Not Recovered/Not Resolved]
  - Haematospermia [Unknown]
  - Blood urine present [Not Recovered/Not Resolved]
